FAERS Safety Report 13510150 (Version 1)
Quarter: 2017Q2

REPORT INFORMATION
  Report Type: Spontaneous
  Country: AL (occurrence: AL)
  Receive Date: 20170503
  Receipt Date: 20170503
  Transmission Date: 20170830
  Serious: Yes (Other)
  Sender: FDA-Public Use
  Company Number: AL-IMPAX LABORATORIES, INC-2017-IPXL-01177

PATIENT
  Age: 18 Year
  Sex: Male

DRUGS (1)
  1. ADRENACLICK [Suspect]
     Active Substance: EPINEPHRINE
     Indication: ULCER HAEMORRHAGE
     Dosage: 10 ML, OF 0.2 %
     Route: 050

REACTIONS (1)
  - Intestinal haematoma [Recovered/Resolved]
